FAERS Safety Report 9100783 (Version 2)
Quarter: 2013Q1

REPORT INFORMATION
  Report Type: Spontaneous
  Country: US (occurrence: US)
  Receive Date: 20130215
  Receipt Date: 20130327
  Transmission Date: 20140127
  Serious: Yes (Other)
  Sender: FDA-Public Use
  Company Number: US-PFIZER INC-2013058235

PATIENT
  Sex: Female

DRUGS (1)
  1. LYRICA [Suspect]
     Dosage: 50 MG, UNK

REACTIONS (4)
  - Pain [Unknown]
  - Thinking abnormal [Unknown]
  - Burning sensation [Unknown]
  - Intentional drug misuse [Unknown]
